FAERS Safety Report 22151059 (Version 65)
Quarter: 2025Q4

REPORT INFORMATION
  Report Type: Spontaneous
  Country: GB (occurrence: GB)
  Receive Date: 20230329
  Receipt Date: 20251218
  Transmission Date: 20260118
  Serious: Yes (Hospitalization, Other)
  Sender: BAUSCH AND LOMB
  Company Number: None

PATIENT
  Age: 34 Year
  Sex: Female

DRUGS (290)
  1. RIFAXIMIN [Suspect]
     Active Substance: RIFAXIMIN
     Indication: Product used for unknown indication
     Route: 065
  2. RIFAXIMIN [Suspect]
     Active Substance: RIFAXIMIN
     Route: 065
  3. RIFAXIMIN [Suspect]
     Active Substance: RIFAXIMIN
     Route: 065
  4. RIFAXIMIN [Suspect]
     Active Substance: RIFAXIMIN
     Route: 065
  5. RIFAXIMIN [Suspect]
     Active Substance: RIFAXIMIN
     Route: 065
  6. RIFAXIMIN [Suspect]
     Active Substance: RIFAXIMIN
     Route: 065
  7. RIFAXIMIN [Suspect]
     Active Substance: RIFAXIMIN
     Route: 065
  8. RIFAXIMIN [Suspect]
     Active Substance: RIFAXIMIN
     Route: 065
  9. RIFAXIMIN [Suspect]
     Active Substance: RIFAXIMIN
     Route: 065
  10. RIFAXIMIN [Suspect]
     Active Substance: RIFAXIMIN
     Route: 065
  11. RIFAXIMIN [Suspect]
     Active Substance: RIFAXIMIN
     Route: 065
  12. RIFAXIMIN [Suspect]
     Active Substance: RIFAXIMIN
     Route: 065
  13. RIFAXIMIN [Suspect]
     Active Substance: RIFAXIMIN
     Route: 065
  14. RIFAXIMIN [Suspect]
     Active Substance: RIFAXIMIN
     Route: 065
  15. RIFAXIMIN [Suspect]
     Active Substance: RIFAXIMIN
     Route: 065
  16. RIFAXIMIN [Suspect]
     Active Substance: RIFAXIMIN
     Route: 065
  17. RIFAXIMIN [Suspect]
     Active Substance: RIFAXIMIN
     Route: 065
  18. RIFAXIMIN [Suspect]
     Active Substance: RIFAXIMIN
     Route: 065
  19. RIFAXIMIN [Suspect]
     Active Substance: RIFAXIMIN
     Route: 065
  20. RIFAXIMIN [Suspect]
     Active Substance: RIFAXIMIN
     Route: 065
  21. RIFAXIMIN [Suspect]
     Active Substance: RIFAXIMIN
     Route: 065
  22. RIFAXIMIN [Suspect]
     Active Substance: RIFAXIMIN
     Route: 065
  23. RIFAXIMIN [Suspect]
     Active Substance: RIFAXIMIN
     Route: 065
  24. RIFAXIMIN [Suspect]
     Active Substance: RIFAXIMIN
     Route: 065
  25. RIFAXIMIN [Suspect]
     Active Substance: RIFAXIMIN
     Route: 065
  26. RIFAXIMIN [Suspect]
     Active Substance: RIFAXIMIN
     Indication: Product used for unknown indication
     Route: 050
  27. RIFAXIMIN [Suspect]
     Active Substance: RIFAXIMIN
     Route: 050
  28. RIFAXIMIN [Suspect]
     Active Substance: RIFAXIMIN
     Route: 050
  29. RIFAXIMIN [Suspect]
     Active Substance: RIFAXIMIN
     Route: 050
  30. RIFAXIMIN [Suspect]
     Active Substance: RIFAXIMIN
     Route: 050
  31. RIFAXIMIN [Suspect]
     Active Substance: RIFAXIMIN
     Route: 050
  32. RIFAXIMIN [Suspect]
     Active Substance: RIFAXIMIN
     Route: 050
  33. RIFAXIMIN [Suspect]
     Active Substance: RIFAXIMIN
     Route: 050
  34. RIFAXIMIN [Suspect]
     Active Substance: RIFAXIMIN
     Route: 050
  35. RIFAXIMIN [Suspect]
     Active Substance: RIFAXIMIN
     Route: 050
  36. RIFAXIMIN [Suspect]
     Active Substance: RIFAXIMIN
     Route: 050
  37. RIFAXIMIN [Suspect]
     Active Substance: RIFAXIMIN
     Route: 050
  38. RIFAXIMIN [Suspect]
     Active Substance: RIFAXIMIN
     Route: 050
  39. RIFAXIMIN [Suspect]
     Active Substance: RIFAXIMIN
     Route: 050
  40. RIFAXIMIN [Suspect]
     Active Substance: RIFAXIMIN
     Route: 050
  41. RIFAXIMIN [Suspect]
     Active Substance: RIFAXIMIN
     Route: 050
  42. RIFAXIMIN [Suspect]
     Active Substance: RIFAXIMIN
     Route: 050
  43. RIFAXIMIN [Suspect]
     Active Substance: RIFAXIMIN
     Route: 050
  44. RIFAXIMIN [Suspect]
     Active Substance: RIFAXIMIN
     Route: 050
  45. RIFAXIMIN [Suspect]
     Active Substance: RIFAXIMIN
     Route: 050
  46. ENTYVIO [Suspect]
     Active Substance: VEDOLIZUMAB
     Indication: Crohn^s disease
     Dosage: UNKNOWN, SINGLE DOSE PEN
     Route: 050
  47. ENTYVIO [Suspect]
     Active Substance: VEDOLIZUMAB
     Indication: Product used for unknown indication
     Dosage: UNKNOWN, SINGLE DOSE PEN
     Route: 050
  48. ENTYVIO [Suspect]
     Active Substance: VEDOLIZUMAB
     Dosage: UNKNOWN, SINGLE DOSE PEN
     Route: 050
  49. ENTYVIO [Suspect]
     Active Substance: VEDOLIZUMAB
     Dosage: UNKNOWN, SINGLE DOSE PEN
     Route: 050
  50. ENTYVIO [Suspect]
     Active Substance: VEDOLIZUMAB
     Dosage: UNKNOWN, SINGLE DOSE PEN
     Route: 050
  51. ENTYVIO [Suspect]
     Active Substance: VEDOLIZUMAB
     Dosage: UNKNOWN, SINGLE DOSE PEN
     Route: 050
  52. ENTYVIO [Suspect]
     Active Substance: VEDOLIZUMAB
     Dosage: UNKNOWN, SINGLE DOSE PEN
     Route: 050
  53. ENTYVIO [Suspect]
     Active Substance: VEDOLIZUMAB
     Dosage: UNKNOWN, SINGLE DOSE PEN
     Route: 050
  54. ENTYVIO [Suspect]
     Active Substance: VEDOLIZUMAB
     Dosage: UNKNOWN, SINGLE DOSE PEN
     Route: 050
  55. ENTYVIO [Suspect]
     Active Substance: VEDOLIZUMAB
     Dosage: UNKNOWN, SINGLE DOSE PEN
     Route: 050
  56. ENTYVIO [Suspect]
     Active Substance: VEDOLIZUMAB
     Dosage: UNKNOWN, SINGLE DOSE PEN
     Route: 050
  57. ENTYVIO [Suspect]
     Active Substance: VEDOLIZUMAB
     Dosage: UNKNOWN, SINGLE DOSE PEN
     Route: 050
  58. ENTYVIO [Suspect]
     Active Substance: VEDOLIZUMAB
     Dosage: UNKNOWN, SINGLE DOSE PEN
     Route: 050
  59. ENTYVIO [Suspect]
     Active Substance: VEDOLIZUMAB
     Dosage: UNKNOWN, SINGLE DOSE PEN
     Route: 050
  60. ENTYVIO [Suspect]
     Active Substance: VEDOLIZUMAB
     Dosage: UNKNOWN, SINGLE DOSE PEN
     Route: 050
  61. ENTYVIO [Suspect]
     Active Substance: VEDOLIZUMAB
     Dosage: UNKNOWN, SINGLE DOSE PEN
     Route: 050
  62. ENTYVIO [Suspect]
     Active Substance: VEDOLIZUMAB
     Dosage: UNKNOWN, SINGLE DOSE PEN
     Route: 050
  63. ENTYVIO [Suspect]
     Active Substance: VEDOLIZUMAB
     Dosage: UNKNOWN, SINGLE DOSE PEN
     Route: 050
  64. ENTYVIO [Suspect]
     Active Substance: VEDOLIZUMAB
     Dosage: UNKNOWN, SINGLE DOSE PEN
     Route: 050
  65. ENTYVIO [Suspect]
     Active Substance: VEDOLIZUMAB
     Dosage: UNKNOWN, SINGLE DOSE PEN
     Route: 050
  66. ENTYVIO [Suspect]
     Active Substance: VEDOLIZUMAB
     Dosage: UNKNOWN, SINGLE DOSE PEN
     Route: 050
  67. ENTYVIO [Suspect]
     Active Substance: VEDOLIZUMAB
     Dosage: UNKNOWN, SINGLE DOSE PEN
     Route: 050
  68. ENTYVIO [Suspect]
     Active Substance: VEDOLIZUMAB
     Dosage: UNKNOWN, SINGLE DOSE PEN
     Route: 050
  69. ENTYVIO [Suspect]
     Active Substance: VEDOLIZUMAB
     Dosage: UNKNOWN, SINGLE DOSE PEN
     Route: 050
  70. ENTYVIO [Suspect]
     Active Substance: VEDOLIZUMAB
     Dosage: UNKNOWN, SINGLE DOSE PEN
     Route: 050
  71. REMICADE [Suspect]
     Active Substance: INFLIXIMAB
     Indication: Crohn^s disease
     Route: 042
  72. REMICADE [Suspect]
     Active Substance: INFLIXIMAB
     Indication: Product used for unknown indication
     Route: 042
  73. REMICADE [Suspect]
     Active Substance: INFLIXIMAB
     Route: 042
  74. REMICADE [Suspect]
     Active Substance: INFLIXIMAB
     Route: 065
  75. REMICADE [Suspect]
     Active Substance: INFLIXIMAB
     Route: 042
  76. REMICADE [Suspect]
     Active Substance: INFLIXIMAB
     Route: 050
  77. REMICADE [Suspect]
     Active Substance: INFLIXIMAB
     Route: 050
  78. REMICADE [Suspect]
     Active Substance: INFLIXIMAB
     Route: 050
  79. REMICADE [Suspect]
     Active Substance: INFLIXIMAB
     Route: 042
  80. REMICADE [Suspect]
     Active Substance: INFLIXIMAB
     Route: 042
  81. REMICADE [Suspect]
     Active Substance: INFLIXIMAB
     Route: 042
  82. REMICADE [Suspect]
     Active Substance: INFLIXIMAB
     Route: 042
  83. REMICADE [Suspect]
     Active Substance: INFLIXIMAB
     Route: 065
  84. REMICADE [Suspect]
     Active Substance: INFLIXIMAB
     Route: 065
  85. REMICADE [Suspect]
     Active Substance: INFLIXIMAB
     Route: 065
  86. REMICADE [Suspect]
     Active Substance: INFLIXIMAB
     Route: 050
  87. REMICADE [Suspect]
     Active Substance: INFLIXIMAB
     Route: 050
  88. REMICADE [Suspect]
     Active Substance: INFLIXIMAB
     Route: 050
  89. REMICADE [Suspect]
     Active Substance: INFLIXIMAB
     Route: 050
  90. REMICADE [Suspect]
     Active Substance: INFLIXIMAB
     Route: 050
  91. REMICADE [Suspect]
     Active Substance: INFLIXIMAB
     Route: 050
  92. REMICADE [Suspect]
     Active Substance: INFLIXIMAB
     Route: 050
  93. REMICADE [Suspect]
     Active Substance: INFLIXIMAB
     Route: 050
  94. REMICADE [Suspect]
     Active Substance: INFLIXIMAB
     Route: 050
  95. REMICADE [Suspect]
     Active Substance: INFLIXIMAB
     Route: 065
  96. REMICADE [Suspect]
     Active Substance: INFLIXIMAB
     Route: 065
  97. REMICADE [Suspect]
     Active Substance: INFLIXIMAB
     Route: 065
  98. REMICADE [Suspect]
     Active Substance: INFLIXIMAB
     Route: 065
  99. REMICADE [Suspect]
     Active Substance: INFLIXIMAB
     Route: 050
  100. METHOTREXATE SODIUM [Suspect]
     Active Substance: METHOTREXATE SODIUM
     Indication: Product used for unknown indication
     Route: 050
     Dates: start: 20211211
  101. METHOTREXATE SODIUM [Suspect]
     Active Substance: METHOTREXATE SODIUM
     Route: 050
  102. METHOTREXATE SODIUM [Suspect]
     Active Substance: METHOTREXATE SODIUM
     Route: 050
  103. METHOTREXATE SODIUM [Suspect]
     Active Substance: METHOTREXATE SODIUM
     Route: 050
  104. METHOTREXATE SODIUM [Suspect]
     Active Substance: METHOTREXATE SODIUM
     Route: 050
  105. METHOTREXATE SODIUM [Suspect]
     Active Substance: METHOTREXATE SODIUM
     Route: 050
  106. METHOTREXATE SODIUM [Suspect]
     Active Substance: METHOTREXATE SODIUM
     Route: 050
  107. METHOTREXATE SODIUM [Suspect]
     Active Substance: METHOTREXATE SODIUM
     Route: 050
  108. METHOTREXATE SODIUM [Suspect]
     Active Substance: METHOTREXATE SODIUM
     Route: 050
  109. METHOTREXATE SODIUM [Suspect]
     Active Substance: METHOTREXATE SODIUM
     Route: 050
  110. METHOTREXATE SODIUM [Suspect]
     Active Substance: METHOTREXATE SODIUM
     Route: 050
  111. METHOTREXATE SODIUM [Suspect]
     Active Substance: METHOTREXATE SODIUM
     Route: 050
  112. METHOTREXATE SODIUM [Suspect]
     Active Substance: METHOTREXATE SODIUM
     Route: 050
  113. METHOTREXATE SODIUM [Suspect]
     Active Substance: METHOTREXATE SODIUM
     Route: 050
  114. METHOTREXATE SODIUM [Suspect]
     Active Substance: METHOTREXATE SODIUM
     Route: 050
  115. METHOTREXATE SODIUM [Suspect]
     Active Substance: METHOTREXATE SODIUM
     Route: 050
  116. METHOTREXATE SODIUM [Suspect]
     Active Substance: METHOTREXATE SODIUM
     Route: 050
  117. METHOTREXATE SODIUM [Suspect]
     Active Substance: METHOTREXATE SODIUM
     Route: 050
  118. METHOTREXATE SODIUM [Suspect]
     Active Substance: METHOTREXATE SODIUM
     Route: 050
  119. METHOTREXATE SODIUM [Suspect]
     Active Substance: METHOTREXATE SODIUM
     Route: 050
  120. METHOTREXATE SODIUM [Suspect]
     Active Substance: METHOTREXATE SODIUM
     Route: 050
  121. METHOTREXATE SODIUM [Suspect]
     Active Substance: METHOTREXATE SODIUM
     Route: 050
  122. METHOTREXATE SODIUM [Suspect]
     Active Substance: METHOTREXATE SODIUM
     Route: 050
  123. METHOTREXATE SODIUM [Suspect]
     Active Substance: METHOTREXATE SODIUM
     Route: 050
  124. METHOTREXATE SODIUM [Suspect]
     Active Substance: METHOTREXATE SODIUM
     Route: 050
     Dates: start: 20211112
  125. METHOTREXATE SODIUM [Suspect]
     Active Substance: METHOTREXATE SODIUM
     Route: 050
  126. METHOTREXATE SODIUM [Suspect]
     Active Substance: METHOTREXATE SODIUM
     Route: 050
  127. METHOTREXATE SODIUM [Suspect]
     Active Substance: METHOTREXATE SODIUM
     Route: 050
  128. METHOTREXATE SODIUM [Suspect]
     Active Substance: METHOTREXATE SODIUM
     Route: 050
  129. METHOTREXATE SODIUM [Suspect]
     Active Substance: METHOTREXATE SODIUM
     Route: 050
  130. METHOTREXATE SODIUM [Suspect]
     Active Substance: METHOTREXATE SODIUM
     Route: 050
  131. METHOTREXATE SODIUM [Suspect]
     Active Substance: METHOTREXATE SODIUM
     Route: 050
  132. METHOTREXATE SODIUM [Suspect]
     Active Substance: METHOTREXATE SODIUM
     Route: 050
  133. METHOTREXATE SODIUM [Suspect]
     Active Substance: METHOTREXATE SODIUM
     Route: 050
  134. METHOTREXATE SODIUM [Suspect]
     Active Substance: METHOTREXATE SODIUM
     Route: 050
  135. METHOTREXATE SODIUM [Suspect]
     Active Substance: METHOTREXATE SODIUM
     Route: 050
  136. METHOTREXATE SODIUM [Suspect]
     Active Substance: METHOTREXATE SODIUM
     Route: 050
  137. METHOTREXATE SODIUM [Suspect]
     Active Substance: METHOTREXATE SODIUM
     Route: 050
  138. METHOTREXATE SODIUM [Suspect]
     Active Substance: METHOTREXATE SODIUM
     Route: 050
  139. METHOTREXATE SODIUM [Suspect]
     Active Substance: METHOTREXATE SODIUM
     Route: 050
  140. METHOTREXATE SODIUM [Suspect]
     Active Substance: METHOTREXATE SODIUM
     Route: 050
  141. METHOTREXATE SODIUM [Suspect]
     Active Substance: METHOTREXATE SODIUM
     Route: 050
  142. METHOTREXATE SODIUM [Suspect]
     Active Substance: METHOTREXATE SODIUM
     Route: 050
  143. METHOTREXATE SODIUM [Suspect]
     Active Substance: METHOTREXATE SODIUM
     Route: 050
  144. METHOTREXATE SODIUM [Suspect]
     Active Substance: METHOTREXATE SODIUM
     Route: 050
  145. METHOTREXATE SODIUM [Suspect]
     Active Substance: METHOTREXATE SODIUM
     Route: 050
  146. METHOTREXATE SODIUM [Suspect]
     Active Substance: METHOTREXATE SODIUM
     Route: 050
  147. METHOTREXATE SODIUM [Suspect]
     Active Substance: METHOTREXATE SODIUM
     Route: 050
  148. ADALIMUMAB [Suspect]
     Active Substance: ADALIMUMAB
     Indication: Crohn^s disease
     Dosage: 1 DOSAGE FORM (1 UNIT)
     Route: 050
  149. ADALIMUMAB [Suspect]
     Active Substance: ADALIMUMAB
     Dosage: 1 UNIT, SINGLE DOSE PEN, UNIT EQUAL TO SURE CLICK
     Route: 050
  150. ADALIMUMAB [Suspect]
     Active Substance: ADALIMUMAB
     Route: 050
  151. ADALIMUMAB [Suspect]
     Active Substance: ADALIMUMAB
     Route: 050
  152. ADALIMUMAB [Suspect]
     Active Substance: ADALIMUMAB
     Dosage: UNKNOWN (SINGLE DOSE PEN, UNIT EQUAL TO SURE CLICK)
     Route: 050
  153. ADALIMUMAB [Suspect]
     Active Substance: ADALIMUMAB
     Dosage: UNKNOWN (SINGLE DOSE PEN, UNIT EQUAL TO SURE CLICK)
     Route: 050
  154. ADALIMUMAB [Suspect]
     Active Substance: ADALIMUMAB
     Dosage: UNKNOWN (SINGLE DOSE PEN, UNIT EQUAL TO SURE CLICK)
     Route: 050
  155. ADALIMUMAB [Suspect]
     Active Substance: ADALIMUMAB
     Dosage: UNK (SINGLE DOSE PEN, UNIT EQUAL TO SURE CLICK)
     Route: 050
  156. ADALIMUMAB [Suspect]
     Active Substance: ADALIMUMAB
     Route: 050
  157. ADALIMUMAB [Suspect]
     Active Substance: ADALIMUMAB
     Dosage: UNK (SINGLE DOSE PEN)
     Route: 050
  158. ADALIMUMAB [Suspect]
     Active Substance: ADALIMUMAB
     Route: 050
  159. ADALIMUMAB [Suspect]
     Active Substance: ADALIMUMAB
     Dosage: UNK (1 UNIT, SINGLE DOSE PEN, UNIT EQUAL TO SURE CLICK)
     Route: 050
  160. ADALIMUMAB [Suspect]
     Active Substance: ADALIMUMAB
     Dosage: UNK (1 UNIT, SINGLE DOSE PEN, UNIT EQUAL TO SURE CLICK)
     Route: 050
  161. ADALIMUMAB [Suspect]
     Active Substance: ADALIMUMAB
     Dosage: UNK (1 UNIT, SINGLE DOSE PEN, UNIT EQUAL TO SURE CLICK)
     Route: 050
  162. ADALIMUMAB [Suspect]
     Active Substance: ADALIMUMAB
     Dosage: 1 UNIT
     Route: 050
  163. ADALIMUMAB [Suspect]
     Active Substance: ADALIMUMAB
     Dosage: UNK (1 UNIT, SINGLE DOSE PEN, UNIT EQUAL TO SURE CLICK)
     Route: 050
  164. ADALIMUMAB [Suspect]
     Active Substance: ADALIMUMAB
     Route: 050
  165. ADALIMUMAB [Suspect]
     Active Substance: ADALIMUMAB
     Route: 050
  166. ADALIMUMAB [Suspect]
     Active Substance: ADALIMUMAB
     Route: 050
  167. ADALIMUMAB [Suspect]
     Active Substance: ADALIMUMAB
     Dosage: UNK (1 UNIT, SINGLE DOSE PEN, UNIT EQUAL TO SURE CLICK)
     Route: 050
  168. ADALIMUMAB [Suspect]
     Active Substance: ADALIMUMAB
     Route: 050
  169. ADALIMUMAB [Suspect]
     Active Substance: ADALIMUMAB
     Route: 050
  170. ADALIMUMAB [Suspect]
     Active Substance: ADALIMUMAB
     Dosage: UNKNOWN (SINGLE DOSE PEN, UNIT EQUAL TO SURE CLICK)
     Route: 050
  171. ADALIMUMAB [Suspect]
     Active Substance: ADALIMUMAB
     Dosage: UNKNOWN (SINGLE DOSE PEN, UNIT EQUAL TO SURE CLICK)
     Route: 050
  172. ADALIMUMAB [Suspect]
     Active Substance: ADALIMUMAB
     Dosage: UNKNOWN (SINGLE DOSE PEN, UNIT EQUAL TO SURE CLICK)
     Route: 050
  173. ADALIMUMAB [Suspect]
     Active Substance: ADALIMUMAB
     Dosage: UNKNOWN (SINGLE DOSE PEN, UNIT EQUAL TO SURE CLICK)
     Route: 050
  174. ADALIMUMAB [Suspect]
     Active Substance: ADALIMUMAB
     Route: 050
  175. ADALIMUMAB [Suspect]
     Active Substance: ADALIMUMAB
     Dosage: UNK (SINGLE DOSE PEN)
     Route: 050
  176. ADALIMUMAB [Suspect]
     Active Substance: ADALIMUMAB
     Dosage: UNK
     Route: 050
  177. ADALIMUMAB [Suspect]
     Active Substance: ADALIMUMAB
     Dosage: UNK (1 UNIT, SINGLE DOSE PEN, UNIT EQUAL TO SURE CLICK)
     Route: 050
  178. ADALIMUMAB [Suspect]
     Active Substance: ADALIMUMAB
     Dosage: UNK (1 UNIT, SINGLE DOSE PEN, UNIT EQUAL TO SURE CLICK)
     Route: 050
  179. ADALIMUMAB [Suspect]
     Active Substance: ADALIMUMAB
     Dosage: UNK (1 UNIT, SINGLE DOSE PEN, UNIT EQUAL TO SURE CLICK)
     Route: 050
  180. ADALIMUMAB [Suspect]
     Active Substance: ADALIMUMAB
     Dosage: 1 UNIT
     Route: 050
  181. ADALIMUMAB [Suspect]
     Active Substance: ADALIMUMAB
     Dosage: UNK (1 UNIT, SINGLE DOSE PEN, UNIT EQUAL TO SURE CLICK)
     Route: 050
  182. ADALIMUMAB [Suspect]
     Active Substance: ADALIMUMAB
     Route: 050
  183. ADALIMUMAB [Suspect]
     Active Substance: ADALIMUMAB
     Route: 050
  184. INFLIXIMAB [Suspect]
     Active Substance: INFLIXIMAB
     Indication: Crohn^s disease
     Route: 065
  185. INFLIXIMAB [Suspect]
     Active Substance: INFLIXIMAB
     Route: 065
  186. INFLIXIMAB [Suspect]
     Active Substance: INFLIXIMAB
     Route: 065
  187. INFLIXIMAB [Suspect]
     Active Substance: INFLIXIMAB
     Route: 065
  188. INFLIXIMAB [Suspect]
     Active Substance: INFLIXIMAB
     Route: 065
  189. INFLIXIMAB [Suspect]
     Active Substance: INFLIXIMAB
     Route: 065
  190. INFLIXIMAB [Suspect]
     Active Substance: INFLIXIMAB
     Route: 042
  191. INFLIXIMAB [Suspect]
     Active Substance: INFLIXIMAB
     Route: 065
  192. INFLIXIMAB [Suspect]
     Active Substance: INFLIXIMAB
     Route: 050
  193. INFLIXIMAB [Suspect]
     Active Substance: INFLIXIMAB
     Route: 050
  194. INFLIXIMAB [Suspect]
     Active Substance: INFLIXIMAB
     Route: 042
  195. INFLIXIMAB [Suspect]
     Active Substance: INFLIXIMAB
     Route: 042
  196. INFLIXIMAB [Suspect]
     Active Substance: INFLIXIMAB
     Route: 065
  197. INFLIXIMAB [Suspect]
     Active Substance: INFLIXIMAB
     Route: 050
  198. INFLIXIMAB [Suspect]
     Active Substance: INFLIXIMAB
     Route: 050
  199. INFLIXIMAB [Suspect]
     Active Substance: INFLIXIMAB
     Route: 042
  200. INFLIXIMAB [Suspect]
     Active Substance: INFLIXIMAB
     Route: 042
  201. INFLIXIMAB [Suspect]
     Active Substance: INFLIXIMAB
     Route: 042
  202. VEDOLIZUMAB [Suspect]
     Active Substance: VEDOLIZUMAB
     Indication: Crohn^s disease
     Route: 065
     Dates: start: 20211112
  203. VEDOLIZUMAB [Suspect]
     Active Substance: VEDOLIZUMAB
     Indication: Product used for unknown indication
     Route: 050
  204. VEDOLIZUMAB [Suspect]
     Active Substance: VEDOLIZUMAB
     Route: 050
  205. VEDOLIZUMAB [Suspect]
     Active Substance: VEDOLIZUMAB
     Route: 050
  206. VEDOLIZUMAB [Suspect]
     Active Substance: VEDOLIZUMAB
     Route: 050
  207. VEDOLIZUMAB [Suspect]
     Active Substance: VEDOLIZUMAB
     Route: 050
  208. VEDOLIZUMAB [Suspect]
     Active Substance: VEDOLIZUMAB
     Route: 050
  209. VEDOLIZUMAB [Suspect]
     Active Substance: VEDOLIZUMAB
     Route: 065
  210. VEDOLIZUMAB [Suspect]
     Active Substance: VEDOLIZUMAB
     Route: 065
  211. VEDOLIZUMAB [Suspect]
     Active Substance: VEDOLIZUMAB
     Route: 065
  212. VEDOLIZUMAB [Suspect]
     Active Substance: VEDOLIZUMAB
     Route: 065
  213. VEDOLIZUMAB [Suspect]
     Active Substance: VEDOLIZUMAB
     Route: 065
  214. VEDOLIZUMAB [Suspect]
     Active Substance: VEDOLIZUMAB
     Route: 065
  215. VEDOLIZUMAB [Suspect]
     Active Substance: VEDOLIZUMAB
     Route: 065
  216. VEDOLIZUMAB [Suspect]
     Active Substance: VEDOLIZUMAB
     Route: 065
  217. VEDOLIZUMAB [Suspect]
     Active Substance: VEDOLIZUMAB
     Route: 065
  218. VEDOLIZUMAB [Suspect]
     Active Substance: VEDOLIZUMAB
     Route: 065
  219. VEDOLIZUMAB [Suspect]
     Active Substance: VEDOLIZUMAB
     Route: 065
  220. VEDOLIZUMAB [Suspect]
     Active Substance: VEDOLIZUMAB
     Route: 065
  221. VEDOLIZUMAB [Suspect]
     Active Substance: VEDOLIZUMAB
     Route: 065
  222. VEDOLIZUMAB [Suspect]
     Active Substance: VEDOLIZUMAB
     Route: 065
  223. VEDOLIZUMAB [Suspect]
     Active Substance: VEDOLIZUMAB
     Route: 050
  224. VEDOLIZUMAB [Suspect]
     Active Substance: VEDOLIZUMAB
     Route: 050
  225. VEDOLIZUMAB [Suspect]
     Active Substance: VEDOLIZUMAB
     Route: 050
  226. VEDOLIZUMAB [Suspect]
     Active Substance: VEDOLIZUMAB
     Route: 050
  227. VEDOLIZUMAB [Suspect]
     Active Substance: VEDOLIZUMAB
     Route: 050
  228. VEDOLIZUMAB [Suspect]
     Active Substance: VEDOLIZUMAB
     Route: 050
  229. VEDOLIZUMAB [Suspect]
     Active Substance: VEDOLIZUMAB
     Route: 050
  230. VEDOLIZUMAB [Suspect]
     Active Substance: VEDOLIZUMAB
     Route: 050
  231. METHOTREXATE [Suspect]
     Active Substance: METHOTREXATE
     Indication: Product used for unknown indication
     Route: 050
     Dates: start: 20211112
  232. METHOTREXATE [Suspect]
     Active Substance: METHOTREXATE
     Route: 050
  233. METHOTREXATE [Suspect]
     Active Substance: METHOTREXATE
     Route: 050
  234. METHOTREXATE [Suspect]
     Active Substance: METHOTREXATE
     Route: 050
  235. METHOTREXATE [Suspect]
     Active Substance: METHOTREXATE
     Route: 050
  236. METHOTREXATE [Suspect]
     Active Substance: METHOTREXATE
     Route: 050
  237. METHOTREXATE [Suspect]
     Active Substance: METHOTREXATE
     Route: 065
  238. METHOTREXATE [Suspect]
     Active Substance: METHOTREXATE
     Route: 065
  239. METHOTREXATE [Suspect]
     Active Substance: METHOTREXATE
     Route: 065
  240. METHOTREXATE [Suspect]
     Active Substance: METHOTREXATE
     Route: 065
  241. METHOTREXATE [Suspect]
     Active Substance: METHOTREXATE
     Route: 065
  242. METHOTREXATE [Suspect]
     Active Substance: METHOTREXATE
     Route: 065
  243. METHOTREXATE [Suspect]
     Active Substance: METHOTREXATE
     Route: 065
  244. METHOTREXATE [Suspect]
     Active Substance: METHOTREXATE
     Route: 050
  245. METHOTREXATE [Suspect]
     Active Substance: METHOTREXATE
     Route: 050
  246. METHOTREXATE [Suspect]
     Active Substance: METHOTREXATE
     Route: 050
  247. METHOTREXATE [Suspect]
     Active Substance: METHOTREXATE
     Route: 050
  248. METHOTREXATE [Suspect]
     Active Substance: METHOTREXATE
     Route: 050
  249. METHOTREXATE [Suspect]
     Active Substance: METHOTREXATE
     Route: 050
  250. METHOTREXATE [Suspect]
     Active Substance: METHOTREXATE
     Route: 050
  251. METHOTREXATE [Suspect]
     Active Substance: METHOTREXATE
     Route: 050
  252. METHOTREXATE [Suspect]
     Active Substance: METHOTREXATE
     Route: 050
  253. METHOTREXATE [Suspect]
     Active Substance: METHOTREXATE
     Route: 050
  254. METHOTREXATE [Suspect]
     Active Substance: METHOTREXATE
     Route: 050
  255. METHOTREXATE [Suspect]
     Active Substance: METHOTREXATE
     Route: 050
  256. METHOTREXATE [Suspect]
     Active Substance: METHOTREXATE
     Route: 050
  257. METHOTREXATE [Suspect]
     Active Substance: METHOTREXATE
     Route: 050
  258. METHOTREXATE [Suspect]
     Active Substance: METHOTREXATE
     Route: 065
     Dates: start: 20211211
  259. METHOTREXATE [Suspect]
     Active Substance: METHOTREXATE
     Route: 065
     Dates: start: 20211112
  260. METHOTREXATE [Suspect]
     Active Substance: METHOTREXATE
     Route: 065
     Dates: start: 20211112
  261. METHOTREXATE [Suspect]
     Active Substance: METHOTREXATE
     Route: 050
  262. METHOTREXATE [Suspect]
     Active Substance: METHOTREXATE
     Route: 050
  263. METHOTREXATE [Suspect]
     Active Substance: METHOTREXATE
     Route: 050
  264. METHOTREXATE [Suspect]
     Active Substance: METHOTREXATE
     Route: 050
  265. METHOTREXATE [Suspect]
     Active Substance: METHOTREXATE
     Route: 050
  266. METHOTREXATE [Suspect]
     Active Substance: METHOTREXATE
     Route: 065
  267. METHOTREXATE [Suspect]
     Active Substance: METHOTREXATE
     Route: 065
  268. METHOTREXATE [Suspect]
     Active Substance: METHOTREXATE
     Route: 065
  269. METHOTREXATE [Suspect]
     Active Substance: METHOTREXATE
     Route: 065
  270. METHOTREXATE [Suspect]
     Active Substance: METHOTREXATE
     Route: 065
  271. METHOTREXATE [Suspect]
     Active Substance: METHOTREXATE
     Route: 065
  272. METHOTREXATE [Suspect]
     Active Substance: METHOTREXATE
     Route: 065
  273. METHOTREXATE [Suspect]
     Active Substance: METHOTREXATE
     Route: 050
  274. METHOTREXATE [Suspect]
     Active Substance: METHOTREXATE
     Route: 050
  275. METHOTREXATE [Suspect]
     Active Substance: METHOTREXATE
     Route: 050
  276. METHOTREXATE [Suspect]
     Active Substance: METHOTREXATE
     Route: 050
  277. METHOTREXATE [Suspect]
     Active Substance: METHOTREXATE
     Route: 050
  278. METHOTREXATE [Suspect]
     Active Substance: METHOTREXATE
     Route: 050
  279. METHOTREXATE [Suspect]
     Active Substance: METHOTREXATE
     Route: 050
  280. METHOTREXATE [Suspect]
     Active Substance: METHOTREXATE
     Route: 050
  281. METHOTREXATE [Suspect]
     Active Substance: METHOTREXATE
     Route: 050
  282. METHOTREXATE [Suspect]
     Active Substance: METHOTREXATE
     Route: 050
  283. METHOTREXATE [Suspect]
     Active Substance: METHOTREXATE
     Route: 050
  284. METHOTREXATE [Suspect]
     Active Substance: METHOTREXATE
     Route: 050
  285. METHOTREXATE [Suspect]
     Active Substance: METHOTREXATE
     Route: 050
  286. METHOTREXATE [Suspect]
     Active Substance: METHOTREXATE
     Route: 050
  287. METHOTREXATE [Suspect]
     Active Substance: METHOTREXATE
     Route: 065
  288. METHOTREXATE [Suspect]
     Active Substance: METHOTREXATE
     Route: 065
  289. USTEKINUMAB [Concomitant]
     Active Substance: USTEKINUMAB
     Indication: Product used for unknown indication
     Dates: start: 20211112, end: 2022
  290. HYRIMOZ [Concomitant]
     Active Substance: ADALIMUMAB-ADAZ
     Indication: Product used for unknown indication
     Dosage: PRE-FILLED SYRINGE PLUS X100
     Route: 050

REACTIONS (12)
  - Small intestinal obstruction [Unknown]
  - Crohn^s disease [Unknown]
  - Nerve injury [Unknown]
  - Gastrointestinal microorganism overgrowth [Unknown]
  - Quality of life decreased [Unknown]
  - Drug specific antibody present [Unknown]
  - Impaired quality of life [Unknown]
  - Incontinence [Unknown]
  - Pancreatitis [Unknown]
  - Pneumonia [Unknown]
  - Frequent bowel movements [Unknown]
  - Drug ineffective [Unknown]

NARRATIVE: CASE EVENT DATE: 20220101
